FAERS Safety Report 11792818 (Version 7)
Quarter: 2016Q1

REPORT INFORMATION
  Report Type: Spontaneous
  Country: JP (occurrence: JP)
  Receive Date: 20151202
  Receipt Date: 20160201
  Transmission Date: 20160525
  Serious: Yes (Hospitalization)
  Sender: FDA-Public Use
  Company Number: JP-DSJP-DSJ-2015-136343

PATIENT
  Age: 74 Year
  Sex: Female
  Weight: 46 kg

DRUGS (16)
  1. PACLITAXEL. [Concomitant]
     Active Substance: PACLITAXEL
     Dosage: 234 MG, ONCE EVERY 3 OR 4 WKS
     Route: 041
     Dates: start: 20151112
  2. YOKUKANSAN [Concomitant]
     Active Substance: HERBALS
     Indication: INSOMNIA
     Dosage: 2.5 G, BID
     Route: 048
     Dates: start: 20140401
  3. XYLOCAINE [Concomitant]
     Active Substance: LIDOCAINE HYDROCHLORIDE
     Indication: LOCAL ANAESTHESIA
     Dosage: 10 ML, QD
     Route: 061
     Dates: start: 20151105, end: 20151105
  4. PACLITAXEL. [Concomitant]
     Active Substance: PACLITAXEL
     Indication: OVARIAN CANCER
     Dosage: 234 MG, ONCE EVERY 3 OR 4 WKS
     Route: 041
     Dates: start: 20150928
  5. CARBOPLATIN. [Concomitant]
     Active Substance: CARBOPLATIN
     Indication: OVARIAN CANCER
     Dosage: 213 MG, ONCE  EVERY 3 OR 4 WKS
     Route: 041
     Dates: start: 20150928
  6. DAIKENCHUTO [Concomitant]
     Active Substance: HERBALS
     Indication: FLATULENCE
     Dosage: 5 G, TID
     Route: 048
     Dates: start: 20140401
  7. DOMPERIDONE [Concomitant]
     Active Substance: DOMPERIDONE
     Indication: NAUSEA
     Dosage: 10 MG, BID
     Route: 048
     Dates: start: 20151106, end: 20151109
  8. LANSOPRAZOLE. [Concomitant]
     Active Substance: LANSOPRAZOLE
     Indication: GASTROOESOPHAGEAL REFLUX DISEASE
     Dosage: 15 MG, QD
     Route: 048
     Dates: start: 20151105
  9. AVASTIN [Concomitant]
     Active Substance: BEVACIZUMAB
     Dosage: 660 MG, ONCE EVERY 3 OR 4WKS
     Route: 041
     Dates: start: 20151112
  10. AMLODIPINE [Concomitant]
     Active Substance: AMLODIPINE BESYLATE
     Indication: HYPERTENSION
     Dosage: 5 MG, QD
     Route: 048
     Dates: start: 20140401
  11. MICARDIS [Concomitant]
     Active Substance: TELMISARTAN
     Indication: HYPERTENSION
     Dosage: 20 MG, QD
     Route: 048
     Dates: start: 20150601
  12. CEFCAPENE PIVOXIL [Concomitant]
     Active Substance: CEFCAPENE PIVOXIL
     Indication: INFECTION PROPHYLAXIS
     Dosage: 100 MG, BID
     Route: 048
     Dates: start: 20151105, end: 20151106
  13. CARBOPLATIN. [Concomitant]
     Active Substance: CARBOPLATIN
     Dosage: 213 MG, ONCE EVERY 3 OR 4 WKS
     Route: 041
     Dates: start: 20151112
  14. LIXIANA TABLETS 30MG [Suspect]
     Active Substance: EDOXABAN TOSILATE MONOHYDRATE
     Indication: DEEP VEIN THROMBOSIS
     Dosage: 30 MG, QD
     Route: 048
     Dates: start: 20150501, end: 20151106
  15. MAGLAX [Concomitant]
     Active Substance: MAGNESIUM OXIDE
     Indication: CONSTIPATION
     Dosage: 500 MG, TID
     Route: 048
     Dates: start: 20140401
  16. AVASTIN [Concomitant]
     Active Substance: BEVACIZUMAB
     Indication: OVARIAN CANCER
     Dosage: 660 MG, ONCE EVERY 3 OR 4WKS
     Route: 041
     Dates: start: 20151013

REACTIONS (3)
  - Haemorrhage [Recovered/Resolved]
  - Renal impairment [Recovered/Resolved]
  - Lymphocele [Recovering/Resolving]

NARRATIVE: CASE EVENT DATE: 20151106
